FAERS Safety Report 24795037 (Version 1)
Quarter: 2024Q4

REPORT INFORMATION
  Report Type: Spontaneous
  Country: US (occurrence: US)
  Receive Date: 20241231
  Receipt Date: 20241231
  Transmission Date: 20250114
  Serious: Yes (Other)
  Sender: ALEXION PHARMACEUTICALS
  Company Number: US-ASTRAZENECA-202412USA022958US

PATIENT
  Age: 56 Year

DRUGS (7)
  1. FARXIGA [Suspect]
     Active Substance: DAPAGLIFLOZIN PROPANEDIOL
  2. FARXIGA [Suspect]
     Active Substance: DAPAGLIFLOZIN PROPANEDIOL
  3. ENTRESTO [Suspect]
     Active Substance: SACUBITRIL\VALSARTAN
  4. LOSARTAN [Suspect]
     Active Substance: LOSARTAN
  5. CARVEDILOL [Suspect]
     Active Substance: CARVEDILOL
  6. AMIODARONE [Suspect]
     Active Substance: AMIODARONE
  7. SPIRONOLACTONE [Suspect]
     Active Substance: SPIRONOLACTONE

REACTIONS (11)
  - Ventricular fibrillation [Unknown]
  - Ejection fraction decreased [Unknown]
  - Left ventricular hypertrophy [Unknown]
  - Throat clearing [Unknown]
  - Hypersensitivity [Unknown]
  - Dyspnoea [Unknown]
  - Asthenia [Unknown]
  - Blood pressure decreased [Unknown]
  - Renal disorder [Unknown]
  - Fatigue [Unknown]
  - Cough [Unknown]
